FAERS Safety Report 17949855 (Version 1)
Quarter: 2020Q2

REPORT INFORMATION
  Report Type: Spontaneous
  Country: GB (occurrence: GB)
  Receive Date: 20200626
  Receipt Date: 20200626
  Transmission Date: 20200714
  Serious: Yes (Other)
  Sender: FDA-Public Use
  Company Number: GB-BRISTOL-MYERS SQUIBB COMPANY-BMS-2020-048655

PATIENT
  Age: 82 Year
  Sex: Male
  Weight: 107 kg

DRUGS (6)
  1. APIXABAN [Suspect]
     Active Substance: APIXABAN
     Indication: PRODUCT USED FOR UNKNOWN INDICATION
     Dosage: 5 MILLIGRAM, PER DAY
     Route: 065
     Dates: start: 20200417, end: 20200430
  2. METOCLOPRAMIDE. [Concomitant]
     Active Substance: METOCLOPRAMIDE
     Indication: NAUSEA
     Dosage: ONE TO BE TAKEN THREE TIMES A DAY IF REQUIRED
     Route: 065
     Dates: start: 20200512
  3. ACIDEX [CALCIUM CARBONATE;SODIUM ALGINATE;SODIUM BICARBONATE] [Concomitant]
     Indication: PRODUCT USED FOR UNKNOWN INDICATION
     Dosage: 10-20ML TO BE TAKEN AFTER MEALS AND AT BEDTIME.
     Route: 065
     Dates: start: 20200504
  4. WARFARIN [Concomitant]
     Active Substance: WARFARIN
     Indication: DEEP VEIN THROMBOSIS
     Dosage: AS DIRECTED 1M AND 3MG TABLETS
     Route: 065
     Dates: start: 20200417, end: 20200522
  5. DALTEPARIN SODIUM [Concomitant]
     Active Substance: DALTEPARIN SODIUM
     Indication: PRODUCT USED FOR UNKNOWN INDICATION
     Dosage: 18000 INTERNATIONAL UNIT, PER DAY (FOR 3 MONTHS)
     Route: 058
     Dates: start: 20200529
  6. CYCLIZINE [Concomitant]
     Active Substance: CYCLIZINE
     Indication: MALAISE
     Dosage: ONE TWICE A DAY AS REQUIRED
     Route: 065
     Dates: start: 20200515

REACTIONS (2)
  - Malaise [Unknown]
  - Hepatitis [Recovering/Resolving]

NARRATIVE: CASE EVENT DATE: 20200430
